FAERS Safety Report 17089374 (Version 6)
Quarter: 2020Q1

REPORT INFORMATION
  Report Type: Report from Study
  Country: US (occurrence: US)
  Receive Date: 20191128
  Receipt Date: 20200225
  Transmission Date: 20200409
  Serious: Yes (Hospitalization)
  Sender: FDA-Public Use
  Company Number: NVSC2019US046644

PATIENT
  Age: 3 Year
  Sex: Male

DRUGS (19)
  1. THIOGUANINE [Suspect]
     Active Substance: THIOGUANINE
     Indication: B PRECURSOR TYPE ACUTE LEUKAEMIA
     Dosage: 40 MG, QD
     Route: 048
     Dates: start: 20191122, end: 20191205
  2. METHOTREXATE. [Concomitant]
     Active Substance: METHOTREXATE
     Dosage: 12 MG, ONCE
     Route: 037
     Dates: start: 20200102
  3. METHOTREXATE. [Concomitant]
     Active Substance: METHOTREXATE
     Indication: B PRECURSOR TYPE ACUTE LEUKAEMIA
     Dosage: 12 MG, ONCE
     Route: 037
     Dates: start: 20190523, end: 20191220
  4. INC424A [Suspect]
     Active Substance: RUXOLITINIB
     Dosage: 35 MG, BID
     Route: 048
     Dates: start: 20200102
  5. VINCRISTINE [Suspect]
     Active Substance: VINCRISTINE
     Dosage: 1.1 MILLIGRAM, ONCE
     Route: 042
     Dates: start: 20190606, end: 20191220
  6. CYCLOPHOSPHAMIDE. [Suspect]
     Active Substance: CYCLOPHOSPHAMIDE
     Dosage: 730 MG, QD
     Route: 042
  7. PEGASPARGASE [Suspect]
     Active Substance: PEGASPARGASE
     Indication: B PRECURSOR TYPE ACUTE LEUKAEMIA
     Dosage: 1800 IU, QD
     Route: 042
     Dates: start: 20190606, end: 20191220
  8. INC424A [Suspect]
     Active Substance: RUXOLITINIB
     Dosage: 35 MG, BID
     Route: 048
     Dates: start: 20191206, end: 20191220
  9. CYTARABINE. [Suspect]
     Active Substance: CYTARABINE
     Indication: B PRECURSOR TYPE ACUTE LEUKAEMIA
     Dosage: 53 MG, QD
     Route: 042
     Dates: start: 20190523
  10. INC424A [Suspect]
     Active Substance: RUXOLITINIB
     Indication: B PRECURSOR TYPE ACUTE LEUKAEMIA
     Dosage: 35 MG, BID
     Route: 048
     Dates: start: 20190523, end: 20191205
  11. VINCRISTINE [Suspect]
     Active Substance: VINCRISTINE
     Dosage: 1.1 MILLIGRAM, ONCE
     Route: 042
     Dates: start: 20200102
  12. THIOGUANINE [Suspect]
     Active Substance: THIOGUANINE
     Dosage: 40 MG, QD
     Route: 048
     Dates: start: 20191206
  13. DEXAMETHASONE SODIUM PHOSPHATE. [Suspect]
     Active Substance: DEXAMETHASONE SODIUM PHOSPHATE
     Indication: B PRECURSOR TYPE ACUTE LEUKAEMIA
     Dosage: 7.5 ML, QD
     Route: 048
     Dates: start: 20191025, end: 20191114
  14. PEGASPARGASE [Suspect]
     Active Substance: PEGASPARGASE
     Dosage: 1800 IU, QD
     Route: 042
     Dates: start: 20200103
  15. CYCLOPHOSPHAMIDE. [Suspect]
     Active Substance: CYCLOPHOSPHAMIDE
     Indication: B PRECURSOR TYPE ACUTE LEUKAEMIA
     Dosage: 700 MG, QD
     Route: 042
     Dates: start: 20190523
  16. CYTARABINE. [Suspect]
     Active Substance: CYTARABINE
     Dosage: 56 MG, QD
     Route: 042
  17. VINCRISTINE [Suspect]
     Active Substance: VINCRISTINE
     Indication: B PRECURSOR TYPE ACUTE LEUKAEMIA
     Dosage: 1.1 MG, QD
     Route: 042
     Dates: start: 20190606, end: 20191109
  18. DOXORUBICIN [Suspect]
     Active Substance: DOXORUBICIN
     Indication: B PRECURSOR TYPE ACUTE LEUKAEMIA
     Dosage: 19 MG, QD
     Route: 042
     Dates: start: 20191025, end: 20191108
  19. MERCAPTOPURINE. [Concomitant]
     Active Substance: MERCAPTOPURINE
     Indication: B PRECURSOR TYPE ACUTE LEUKAEMIA
     Dosage: 300 MG, WEEKLY
     Route: 048
     Dates: start: 20190523, end: 20191010

REACTIONS (2)
  - Febrile neutropenia [Recovered/Resolved]
  - Febrile neutropenia [Recovered/Resolved]

NARRATIVE: CASE EVENT DATE: 20191116
